FAERS Safety Report 18493460 (Version 1)
Quarter: 2020Q4

REPORT INFORMATION
  Report Type: Spontaneous
  Country: US (occurrence: US)
  Receive Date: 20201111
  Receipt Date: 20201111
  Transmission Date: 20210114
  Serious: Yes (Hospitalization, Other)
  Sender: FDA-Public Use
  Company Number: US-PURDUE-USA-2020-0169742

PATIENT
  Sex: Male

DRUGS (4)
  1. OXYCODONE HCL TABLETS (RHODES 91-490) [Suspect]
     Active Substance: OXYCODONE HYDROCHLORIDE
     Indication: PRODUCT USED FOR UNKNOWN INDICATION
     Dosage: 15 MG, Q4H
     Route: 048
  2. HYDROCODONE BITARTRATE/ACETAMINOPHEN [Suspect]
     Active Substance: ACETAMINOPHEN\HYDROCODONE BITARTRATE
     Indication: PRODUCT USED FOR UNKNOWN INDICATION
     Route: 048
  3. OXYIR [Suspect]
     Active Substance: OXYCODONE HYDROCHLORIDE
     Indication: PRODUCT USED FOR UNKNOWN INDICATION
     Route: 065
  4. OXYCONTIN [Suspect]
     Active Substance: OXYCODONE HYDROCHLORIDE
     Indication: BACK PAIN
     Dosage: 270 MG, DAILY
     Route: 048
     Dates: start: 2014

REACTIONS (11)
  - Renal failure [Unknown]
  - Overdose [Recovered/Resolved]
  - Tremor [Not Recovered/Not Resolved]
  - Loss of personal independence in daily activities [Not Recovered/Not Resolved]
  - Blood creatine increased [Recovered/Resolved]
  - Renal impairment [Unknown]
  - Sexual dysfunction [Not Recovered/Not Resolved]
  - Withdrawal syndrome [Unknown]
  - Drug dependence [Unknown]
  - Loss of consciousness [Recovered/Resolved]
  - Myoclonus [Not Recovered/Not Resolved]

NARRATIVE: CASE EVENT DATE: 2014
